FAERS Safety Report 24714800 (Version 1)
Quarter: 2024Q4

REPORT INFORMATION
  Report Type: Spontaneous
  Country: US (occurrence: US)
  Receive Date: 20241210
  Receipt Date: 20241210
  Transmission Date: 20250115
  Serious: No
  Sender: GLAXOSMITHKLINE
  Company Number: US-GSK-US2024153211

PATIENT
  Age: 47 Year
  Sex: Female

DRUGS (2)
  1. BENLYSTA [Suspect]
     Active Substance: BELIMUMAB
     Indication: Systemic lupus erythematosus
     Dosage: 400 MG, (X3) IN A 20-ML SINGLE-USE VIAL RECONSTITUTE WITH 4.8 ML STERILE WATER FOR INJECTION, USP
     Dates: start: 20241022
  2. STERILE WATER [Concomitant]
     Active Substance: WATER
     Indication: Systemic lupus erythematosus
     Dosage: 4.8 ML

REACTIONS (1)
  - Product dose omission issue [Unknown]

NARRATIVE: CASE EVENT DATE: 20241119
